FAERS Safety Report 17757666 (Version 32)
Quarter: 2025Q3

REPORT INFORMATION
  Report Type: Report from Study
  Country: US (occurrence: US)
  Receive Date: 20200507
  Receipt Date: 20250918
  Transmission Date: 20251021
  Serious: Yes (Hospitalization, Other)
  Sender: TAKEDA
  Company Number: US-SHIRE-US202015570

PATIENT
  Age: 80 Year
  Sex: Female
  Weight: 81 kg

DRUGS (23)
  1. HUMAN IMMUNOGLOBULIN G [Suspect]
     Active Substance: HUMAN IMMUNOGLOBULIN G
     Indication: Immunodeficiency common variable
     Dosage: 15 GRAM, 1/WEEK
  2. HUMAN IMMUNOGLOBULIN G [Suspect]
     Active Substance: HUMAN IMMUNOGLOBULIN G
     Dosage: 15 GRAM, 1/WEEK
     Dates: start: 20121119
  3. CUVITRU [Suspect]
     Active Substance: HUMAN IMMUNOGLOBULIN G
     Indication: Immunodeficiency common variable
     Dosage: 11 GRAM, Q2WEEKS
     Dates: start: 20250122
  4. CUVITRU [Suspect]
     Active Substance: HUMAN IMMUNOGLOBULIN G
     Dosage: 11 GRAM, Q2WEEKS
     Dates: end: 20250204
  5. DIPHENHYDRAMINE [Concomitant]
     Active Substance: DIPHENHYDRAMINE
  6. CARVEDILOL [Concomitant]
     Active Substance: CARVEDILOL
  7. GLIPIZIDE [Concomitant]
     Active Substance: GLIPIZIDE
  8. REMERON [Concomitant]
     Active Substance: MIRTAZAPINE
  9. SYNTHROID [Concomitant]
     Active Substance: LEVOTHYROXINE SODIUM
  10. TRAMADOL HCL [Concomitant]
     Active Substance: TRAMADOL HYDROCHLORIDE
     Indication: Product used for unknown indication
  11. ACETAMINOPHEN [Concomitant]
     Active Substance: ACETAMINOPHEN
  12. ZOFRAN [Concomitant]
     Active Substance: ONDANSETRON HYDROCHLORIDE
  13. LOSARTAN POTASSIUM [Concomitant]
     Active Substance: LOSARTAN POTASSIUM
  14. HYDROCHLOROTHIAZIDE [Concomitant]
     Active Substance: HYDROCHLOROTHIAZIDE
  15. OMEPRAZOLE [Concomitant]
     Active Substance: OMEPRAZOLE
  16. TIZANIDINE HYDROCHLORIDE [Concomitant]
     Active Substance: TIZANIDINE HYDROCHLORIDE
  17. BANOPHEN [Concomitant]
     Active Substance: DIPHENHYDRAMINE HYDROCHLORIDE
  18. PROPRANOLOL [Concomitant]
     Active Substance: PROPRANOLOL HYDROCHLORIDE
  19. OXYCODONE HYDROCHLORIDE [Concomitant]
     Active Substance: OXYCODONE HYDROCHLORIDE
  20. EPINEPHRINE [Concomitant]
     Active Substance: EPINEPHRINE
  21. REPATHA [Concomitant]
     Active Substance: EVOLOCUMAB
  22. DIPHENHYDRAMINE HYDROCHLORIDE [Concomitant]
     Active Substance: DIPHENHYDRAMINE HYDROCHLORIDE
  23. LIDOCAINE [Concomitant]
     Active Substance: LIDOCAINE

REACTIONS (23)
  - Urinary tract infection [Not Recovered/Not Resolved]
  - Blood urine present [Unknown]
  - Renal failure [Unknown]
  - Fall [Unknown]
  - Decubitus ulcer [Unknown]
  - Needle issue [Unknown]
  - Allergy to immunoglobulin therapy [Unknown]
  - Dermatitis contact [Unknown]
  - Infusion related reaction [Unknown]
  - Device malfunction [Unknown]
  - Incorrect drug administration rate [Unknown]
  - Dysania [Unknown]
  - Feeling abnormal [Unknown]
  - Body temperature decreased [Unknown]
  - Feeling cold [Unknown]
  - Contusion [Unknown]
  - Oedema peripheral [Recovered/Resolved]
  - Pain [Unknown]
  - Back pain [Unknown]
  - Chills [Unknown]
  - Infusion site pain [Unknown]
  - Nausea [Unknown]
  - Headache [Recovered/Resolved]

NARRATIVE: CASE EVENT DATE: 20230415
